FAERS Safety Report 7346563-8 (Version None)
Quarter: 2011Q1

REPORT INFORMATION
  Report Type: 
  Country: None (occurrence: None)
  Receive Date: 20110311
  Receipt Date: 20101115
  Transmission Date: 20110831
  Serious: Yes (Other)
  Sender: FDA-Public Use
  Company Number: US-JNJFOC-20101206292

PATIENT

DRUGS (7)
  1. PREDNISONE [Suspect]
     Indication: NON-HODGKIN'S LYMPHOMA
     Dosage: CYCLE 1 DAYS 1-5
     Route: 048
  2. DOXORUBICIN HCL [Suspect]
     Indication: NON-HODGKIN'S LYMPHOMA
     Dosage: CYCLE 1 DAY 1
     Route: 042
  3. CYCLOPHOSPHAMIDE [Suspect]
     Indication: NON-HODGKIN'S LYMPHOMA
     Dosage: CYCLE 1 DAY 1
     Route: 042
  4. RITUXIMAB [Suspect]
     Indication: NON-HODGKIN'S LYMPHOMA
     Dosage: DAY 1 FROM CYCLE 2 ONWARDS
     Route: 042
  5. VINCRISTINE [Suspect]
     Indication: NON-HODGKIN'S LYMPHOMA
     Dosage: CYCLE 1 DAY 1
     Route: 042
  6. ALLOPURINOL [Concomitant]
     Indication: PROPHYLAXIS
     Dosage: 24- 48 HOURS PRIOR TO 1ST CYCLE OF TREATMENT
     Route: 048
  7. ALLOPURINOL [Concomitant]
     Dosage: 10 DAYS AFTER 1ST CYCLE OF TREATMENT
     Route: 048

REACTIONS (1)
  - MYOCARDIAL INFARCTION [None]
